APPROVED DRUG PRODUCT: TEMOZOLOMIDE
Active Ingredient: TEMOZOLOMIDE
Strength: 20MG
Dosage Form/Route: CAPSULE;ORAL
Application: A206413 | Product #002 | TE Code: AB
Applicant: CHARTWELL LIFE MOLECULES LLC
Approved: Apr 12, 2016 | RLD: No | RS: No | Type: RX